FAERS Safety Report 4600100-7 (Version None)
Quarter: 2005Q1

REPORT INFORMATION
  Report Type: 
  Country: None (occurrence: None)
  Receive Date: 20050303
  Receipt Date: 20050211
  Transmission Date: 20050727
  Serious: Yes (Hospitalization, Other)
  Sender: FDA-Public Use
  Company Number: GBS050216631

PATIENT
  Age: 35 Year
  Sex: Female

DRUGS (8)
  1. PROZAC [Suspect]
     Indication: DEPRESSION
     Dosage: 20 MG DAY
     Dates: start: 19920101
  2. OLANZAPINE [Suspect]
     Indication: DEPRESSION
     Dosage: 30 MG DAY
     Dates: start: 19960101
  3. ZUCLOPENTHIXOL [Concomitant]
  4. LITHIUM [Concomitant]
  5. CHLORPROMAZINE [Concomitant]
  6. PROCYCLIDINE HYDROCHLORIDE 2MG TAB [Concomitant]
  7. THYROXINE (LEVOTHYROXINE SODIUM) [Concomitant]
  8. ORAL CONTRACEPTIVE NOS [Concomitant]

REACTIONS (28)
  - ACUTE PSYCHOSIS [None]
  - AMENORRHOEA [None]
  - AUTOMATISM, COMMAND [None]
  - BLOOD PROLACTIN INCREASED [None]
  - DELUSION OF REFERENCE [None]
  - DEPENDENT PERSONALITY DISORDER [None]
  - DEPRESSION [None]
  - DRUG INEFFECTIVE [None]
  - GALACTORRHOEA [None]
  - HALLUCINATION, AUDITORY [None]
  - HALLUCINATIONS, MIXED [None]
  - HEADACHE [None]
  - HYPERHIDROSIS [None]
  - HYPOTENSION [None]
  - LOGORRHOEA [None]
  - MANIA [None]
  - MOOD SWINGS [None]
  - PERSECUTORY DELUSION [None]
  - PITUITARY TUMOUR BENIGN [None]
  - PYRAMIDAL TRACT SYNDROME [None]
  - SALIVARY HYPERSECRETION [None]
  - SCHIZOAFFECTIVE DISORDER [None]
  - SOMATIC HALLUCINATION [None]
  - STRESS [None]
  - THOUGHT INSERTION [None]
  - URINARY INCONTINENCE [None]
  - VISION BLURRED [None]
  - VISUAL FIELD TESTS ABNORMAL [None]
